FAERS Safety Report 20663782 (Version 1)
Quarter: 2022Q2

REPORT INFORMATION
  Report Type: Spontaneous
  Country: IT (occurrence: IT)
  Receive Date: 20220401
  Receipt Date: 20220401
  Transmission Date: 20220721
  Serious: Yes (Hospitalization)
  Sender: FDA-Public Use
  Company Number: None

PATIENT
  Age: 65 Year
  Sex: Female

DRUGS (5)
  1. QUETIAPINE [Suspect]
     Active Substance: QUETIAPINE
     Indication: Depression
     Dosage: 200MG, DURATION 740MG, FREQUENCY TIME 1DAYS
     Route: 048
     Dates: start: 20200301, end: 20220311
  2. LAMOTRIGINE [Suspect]
     Active Substance: LAMOTRIGINE
     Indication: Epilepsy
     Dosage: 100MG, FREQUENCY TIME 1DAYS, DURATION DAYS740DAYS
     Route: 048
     Dates: start: 20200301, end: 20220311
  3. VALPROIC ACID [Suspect]
     Active Substance: VALPROIC ACID
     Indication: Epilepsy
     Dosage: DEPAKIN CHRONO 300 MG EXTENDED RELEASE TABLET, DURATION 740DAYS, 1DAYS, UNIT DOSE: 300MG
     Route: 048
     Dates: start: 20200301, end: 20220311
  4. BRINTELLIX [Suspect]
     Active Substance: VORTIOXETINE HYDROBROMIDE
     Indication: Depression
     Dosage: 20GTT, DURATION 740DAYS, FREQUENCY TIME 1DAYS
     Route: 048
     Dates: start: 20200301, end: 20220311
  5. LYRICA [Suspect]
     Active Substance: PREGABALIN
     Indication: Epilepsy
     Dosage: LYRICA 75 MG, DURATION 740MG, FREQUENCY TIME 1DAYS; UNIT DOSE: 225MG
     Route: 048
     Dates: start: 20200301, end: 20220311

REACTIONS (2)
  - Altered state of consciousness [Recovering/Resolving]
  - Sopor [Recovering/Resolving]

NARRATIVE: CASE EVENT DATE: 20220311
